FAERS Safety Report 9272082 (Version 1)
Quarter: 2013Q2

REPORT INFORMATION
  Report Type: Spontaneous
  Country: US (occurrence: US)
  Receive Date: 20130506
  Receipt Date: 20130506
  Transmission Date: 20140414
  Serious: No
  Sender: FDA-Public Use
  Company Number: US-ASTRAZENECA-2013SE26577

PATIENT
  Age: 56 Year
  Sex: Female
  Weight: 59 kg

DRUGS (7)
  1. LISINOPRIL [Suspect]
     Indication: NEPHROPROTECTIVE THERAPY
     Route: 048
     Dates: start: 2012
  2. LISINOPRIL [Suspect]
     Indication: HYPERTENSION
     Route: 048
     Dates: start: 2012
  3. CRESTOR [Suspect]
     Indication: BLOOD CHOLESTEROL ABNORMAL
     Route: 048
     Dates: start: 20130206
  4. TRADJENTA [Concomitant]
     Indication: DIABETES MELLITUS
  5. OVER THE COUNTER ANTACID FROM CVS [Concomitant]
     Indication: DYSPEPSIA
  6. OVER THE COUNTER EYE DROPS FOR DRY EYES [Concomitant]
     Indication: DRY EYE
  7. XANAX [Concomitant]
     Indication: FEELING OF RELAXATION

REACTIONS (7)
  - Blood cholesterol increased [Unknown]
  - Muscle spasms [Unknown]
  - Muscle twitching [Unknown]
  - Sleep disorder due to a general medical condition [Unknown]
  - Weight increased [Unknown]
  - Blood glucose increased [Unknown]
  - Intentional drug misuse [Unknown]
